FAERS Safety Report 7686402-9 (Version None)
Quarter: 2011Q3

REPORT INFORMATION
  Report Type: 
  Country: None (occurrence: None)
  Receive Date: 20110816
  Receipt Date: 20110803
  Transmission Date: 20111222
  Serious: Yes (Other)
  Sender: FDA-Public Use
  Company Number: CA-ELI_LILLY_AND_COMPANY-CA201108001097

PATIENT
  Sex: Male

DRUGS (13)
  1. SEROQUEL [Concomitant]
  2. ZYPREXA ZYDIS [Suspect]
     Indication: BIPOLAR I DISORDER
     Dosage: 15 MG, UNKNOWN
  3. ZYPREXA [Suspect]
     Dosage: 5 MG, UNKNOWN
  4. ASPIRIN [Concomitant]
  5. PREVACID [Concomitant]
  6. CIALIS [Concomitant]
  7. ZYPREXA [Suspect]
     Dosage: 15 MG, UNKNOWN
  8. FLUOXETINE [Concomitant]
  9. ALPRAZOLAM [Concomitant]
  10. ZYPREXA [Suspect]
     Indication: BIPOLAR I DISORDER
     Dosage: 7.5 MG, UNKNOWN
  11. ZYPREXA [Suspect]
     Dosage: 20 MG, QD
  12. BUPROPION HCL [Concomitant]
  13. ZYPREXA [Suspect]
     Dosage: 10 MG, UNKNOWN

REACTIONS (10)
  - DIABETES MELLITUS [None]
  - MICROALBUMINURIA [None]
  - WEIGHT INCREASED [None]
  - ATRIAL FIBRILLATION [None]
  - ESSENTIAL HYPERTENSION [None]
  - HYPOGLYCAEMIA [None]
  - BLOOD CHOLESTEROL INCREASED [None]
  - CATARACT [None]
  - POLYP [None]
  - HAEMATOCHEZIA [None]
